FAERS Safety Report 5917634-5 (Version None)
Quarter: 2008Q4

REPORT INFORMATION
  Report Type: 
  Country: None (occurrence: None)
  Receive Date: 20081014
  Receipt Date: 20081005
  Transmission Date: 20090506
  Serious: Yes (Other)
  Sender: FDA-Public Use
  Company Number: US-KINGPHARMUSA00001-K200801178

PATIENT

DRUGS (5)
  1. SILVADENE [Suspect]
     Indication: EPIDERMOLYSIS BULLOSA
     Dosage: UNK, TID
     Route: 061
  2. SILVADENE [Suspect]
     Dosage: UNK, BID
  3. CETIRIZINE HCL [Concomitant]
  4. ENALAPRIL MALEATE [Concomitant]
  5. DIPHENHYDRAMINE HCL [Concomitant]

REACTIONS (1)
  - ARGYRIA [None]
